FAERS Safety Report 19985409 (Version 2)
Quarter: 2021Q4

REPORT INFORMATION
  Report Type: Spontaneous
  Country: GB (occurrence: GB)
  Receive Date: 20211022
  Receipt Date: 20211130
  Transmission Date: 20220303
  Serious: Yes (Hospitalization, Other)
  Sender: FDA-Public Use
  Company Number: GB-AMGEN-GBRSP2021160839

PATIENT
  Age: 49 Year
  Sex: Male
  Weight: 114.5 kg

DRUGS (10)
  1. ADALIMUMAB [Suspect]
     Active Substance: ADALIMUMAB
     Indication: Psoriasis
     Dosage: 40 MILLIGRAM, Q2WK
     Route: 065
     Dates: start: 20190915
  2. AMITRIPTYLINE [Concomitant]
     Active Substance: AMITRIPTYLINE
     Dosage: UNK
  3. TRAMADOL [Concomitant]
     Active Substance: TRAMADOL
     Dosage: UNK
  4. PREGABALIN [Concomitant]
     Active Substance: PREGABALIN
     Dosage: UNK
  5. SYNALAR [Concomitant]
     Active Substance: FLUOCINOLONE ACETONIDE
     Dosage: UNK
  6. CHLORTETRACYCLINE\CLOBETASONE\NYSTATIN [Concomitant]
     Active Substance: CHLORTETRACYCLINE\CLOBETASONE\NYSTATIN
     Dosage: UNK
  7. DULOXETINE [Concomitant]
     Active Substance: DULOXETINE
     Dosage: UNK
     Dates: start: 20160112
  8. AMLODIPINE [Concomitant]
     Active Substance: AMLODIPINE BESYLATE
     Dosage: UNK
     Dates: start: 20160628
  9. OMEPRAZOLE [Concomitant]
     Active Substance: OMEPRAZOLE
     Dosage: UNK
     Dates: start: 20160802
  10. MELOXICAM [Concomitant]
     Active Substance: MELOXICAM
     Dosage: UNK
     Dates: start: 20191128

REACTIONS (2)
  - Cellulitis [Recovered/Resolved]
  - Skin laceration [Recovered/Resolved]

NARRATIVE: CASE EVENT DATE: 20191112
